FAERS Safety Report 16216019 (Version 2)
Quarter: 2019Q2

REPORT INFORMATION
  Report Type: Spontaneous
  Country: CA (occurrence: CA)
  Receive Date: 20190419
  Receipt Date: 20190620
  Transmission Date: 20190711
  Serious: Yes (Other)
  Sender: FDA-Public Use
  Company Number: CA-TEVA-2019-CA-1039411

PATIENT
  Sex: Female

DRUGS (21)
  1. CEFTRIAXONE SODIUM OR INJECTION BP [Suspect]
     Active Substance: CEFTRIAXONE SODIUM
     Indication: PRODUCT USED FOR UNKNOWN INDICATION
     Dosage: 2 GRAM DAILY;
     Route: 042
  2. INFLIXIMAB [Suspect]
     Active Substance: INFLIXIMAB
     Indication: CROHN^S DISEASE
     Route: 042
  3. METRONIDAZOLE. [Suspect]
     Active Substance: METRONIDAZOLE
     Indication: PRODUCT USED FOR UNKNOWN INDICATION
     Dosage: 1000 MILLIGRAM DAILY;
     Route: 042
  4. DIBUCAINE HYDROCHLORIDE/HYDROCORTISONE [Concomitant]
  5. HYDROMORPHONE [Concomitant]
     Active Substance: HYDROMORPHONE
  6. LEVOTHYROXINE. [Concomitant]
     Active Substance: LEVOTHYROXINE
  7. MIDAZOLAM(UNKNOWN) [Suspect]
     Active Substance: MIDAZOLAM HYDROCHLORIDE
     Indication: SEDATION
     Route: 042
  8. CHOLESTYRAMINE. [Concomitant]
     Active Substance: CHOLESTYRAMINE
  9. PEGASYS [Concomitant]
     Active Substance: PEGINTERFERON ALFA-2A
  10. TRIMEBUTINE [Concomitant]
     Active Substance: TRIMEBUTINE
  11. HYDROCHLOROTHIAZIDE. [Suspect]
     Active Substance: HYDROCHLOROTHIAZIDE
     Indication: PRODUCT USED FOR UNKNOWN INDICATION
     Route: 048
  12. PREDNISONE. [Concomitant]
     Active Substance: PREDNISONE
  13. MACROGOL [Concomitant]
     Active Substance: POLYETHYLENE GLYCOLS
  14. MODULON [Concomitant]
     Active Substance: TRIMEBUTINE MALEATE
  15. VENLAFAXINE HYDROCHLORIDE. [Suspect]
     Active Substance: VENLAFAXINE HYDROCHLORIDE
     Indication: PRODUCT USED FOR UNKNOWN INDICATION
     Dosage: 100 MILLIGRAM DAILY;
     Route: 048
  16. CORTIFOAM [Concomitant]
     Active Substance: HYDROCORTISONE ACETATE
  17. RANITIDINE. [Concomitant]
     Active Substance: RANITIDINE
  18. ZOPICLONE [Concomitant]
     Active Substance: ZOPICLONE
  19. AMILORIDE HYDROCHLORIDE TABLETS, USP [Concomitant]
  20. GABAPENTIN. [Suspect]
     Active Substance: GABAPENTIN
     Indication: PRODUCT USED FOR UNKNOWN INDICATION
     Route: 048
  21. VENLAFAXINE HYDROCHLORIDE. [Concomitant]
     Active Substance: VENLAFAXINE HYDROCHLORIDE

REACTIONS (1)
  - Colitis [Unknown]
